FAERS Safety Report 5660764-6 (Version None)
Quarter: 2008Q1

REPORT INFORMATION
  Report Type: 
  Country: None (occurrence: None)
  Receive Date: 20080311
  Receipt Date: 20080303
  Transmission Date: 20080703
  Serious: Yes (Life-Threatening, Hospitalization, Disabling, Other)
  Sender: FDA-Public Use
  Company Number: US-ELI_LILLY_AND_COMPANY-US200802002764

PATIENT
  Age: 55 Year
  Sex: Male
  Weight: 138.32 kg

DRUGS (25)
  1. BYETTA [Suspect]
     Dosage: 10 UG, 2/D
     Route: 058
     Dates: start: 20070401
  2. BYETTA [Suspect]
     Dosage: 10 UG, 2/D
     Route: 058
     Dates: end: 20071103
  3. TRICOR [Concomitant]
     Dosage: UNK, UNKNOWN
  4. TRICOR [Concomitant]
     Dosage: UNK, UNKNOWN
  5. OMEGA-3 [Concomitant]
     Dosage: UNK, UNKNOWN
  6. OMEGA-3 [Concomitant]
     Dosage: UNK, UNKNOWN
  7. LIPITOR [Concomitant]
     Dosage: UNK, UNKNOWN
  8. LIPITOR [Concomitant]
     Dosage: UNK, UNKNOWN
  9. NIASPAN [Concomitant]
     Dosage: UNK, UNKNOWN
  10. NIASPAN [Concomitant]
     Dosage: UNK, UNKNOWN
  11. TOPROL-XL [Concomitant]
     Dosage: UNK, UNKNOWN
  12. TOPROL-XL [Concomitant]
     Dosage: UNK, UNKNOWN
  13. ASPIRIN [Concomitant]
     Dosage: 81 MG, UNKNOWN
  14. ASPIRIN [Concomitant]
     Dosage: 81 MG, UNKNOWN
  15. DOXAZOSIN MESYLATE [Concomitant]
     Dosage: UNK, UNKNOWN
  16. DOXAZOSIN MESYLATE [Concomitant]
     Dosage: UNK, UNKNOWN
  17. FUROSEMIDE [Concomitant]
     Dosage: UNK, UNKNOWN
  18. FUROSEMIDE [Concomitant]
     Dosage: UNK, UNKNOWN
  19. HYDROCHLORZIDE [Concomitant]
     Dosage: UNK, UNKNOWN
  20. EPLERENONE [Concomitant]
     Dosage: UNK, UNKNOWN
  21. EPLERENONE [Concomitant]
     Dosage: UNK, UNKNOWN
  22. ALTACE [Concomitant]
     Dosage: UNK, UNKNOWN
  23. ALTACE [Concomitant]
     Dosage: UNK, UNKNOWN
  24. NOVOLOG MIX 70/30 [Concomitant]
     Dosage: UNK, UNKNOWN
  25. NOVOLOG MIX 70/30 [Concomitant]
     Dosage: UNK, UNKNOWN

REACTIONS (8)
  - ATELECTASIS [None]
  - GENERALISED OEDEMA [None]
  - PANCREATITIS ACUTE [None]
  - PANCREATITIS NECROTISING [None]
  - PERICARDIAL EFFUSION [None]
  - STAPHYLOCOCCAL INFECTION [None]
  - WEIGHT DECREASED [None]
  - WEIGHT INCREASED [None]
